FAERS Safety Report 13943415 (Version 2)
Quarter: 2017Q3

REPORT INFORMATION
  Report Type: Spontaneous
  Country: US (occurrence: US)
  Receive Date: 20170907
  Receipt Date: 20170907
  Transmission Date: 20171128
  Serious: Yes (Hospitalization, Other)
  Sender: FDA-Public Use
  Company Number: US-BRISTOL-MYERS SQUIBB COMPANY-BMS-2017-078695

PATIENT

DRUGS (2)
  1. NIVOLUMAB [Suspect]
     Active Substance: NIVOLUMAB
     Indication: NEOPLASM
     Route: 065
  2. IPILIMUMAB [Suspect]
     Active Substance: IPILIMUMAB
     Indication: NEOPLASM
     Route: 065

REACTIONS (7)
  - Chills [Unknown]
  - Cerebrovascular accident [Unknown]
  - Infection [Unknown]
  - Pyrexia [Unknown]
  - Neoplasm progression [Unknown]
  - Seizure [Unknown]
  - Nausea [Unknown]
